FAERS Safety Report 14023145 (Version 1)
Quarter: 2017Q3

REPORT INFORMATION
  Report Type: Spontaneous
  Country: US (occurrence: US)
  Receive Date: 20170928
  Receipt Date: 20170928
  Transmission Date: 20171128
  Serious: No
  Sender: FDA-Public Use
  Company Number: US-SA-2016SA199437

PATIENT
  Age: 60 Year
  Sex: Female

DRUGS (9)
  1. PROAIR HFA [Concomitant]
     Active Substance: ALBUTEROL SULFATE
  2. TROSPIUM [Concomitant]
     Active Substance: TROSPIUM
  3. AUBAGIO [Suspect]
     Active Substance: TERIFLUNOMIDE
     Indication: MULTIPLE SCLEROSIS
     Route: 048
     Dates: start: 201607
  4. LEVOTHYROXINE. [Concomitant]
     Active Substance: LEVOTHYROXINE
  5. BETASERON [Concomitant]
     Active Substance: INTERFERON BETA-1B
  6. FLUTICASONE. [Concomitant]
     Active Substance: FLUTICASONE
  7. ESTRADIOL. [Concomitant]
     Active Substance: ESTRADIOL
  8. SERTRALINE [Concomitant]
     Active Substance: SERTRALINE HYDROCHLORIDE
  9. ALPRAZOLAM. [Concomitant]
     Active Substance: ALPRAZOLAM

REACTIONS (2)
  - Headache [Not Recovered/Not Resolved]
  - Fatigue [Not Recovered/Not Resolved]

NARRATIVE: CASE EVENT DATE: 2016
